FAERS Safety Report 4385955-6 (Version None)
Quarter: 2004Q2

REPORT INFORMATION
  Report Type: 
  Country: None (occurrence: None)
  Receive Date: 20040607
  Receipt Date: 20040213
  Transmission Date: 20050107
  Serious: Yes (Other)
  Sender: FDA-Public Use
  Company Number: 359035

PATIENT
  Age: 64 Year
  Sex: Male
  Weight: 85.7 kg

DRUGS (1)
  1. ACCUTANE [Suspect]
     Indication: LIP AND/OR ORAL CAVITY CANCER
     Dosage: ORAL
     Route: 048
     Dates: start: 20011213, end: 20031018

REACTIONS (8)
  - ALCOHOL POISONING [None]
  - ALCOHOLISM [None]
  - CRYING [None]
  - DECREASED INTEREST [None]
  - DEPRESSION [None]
  - IMPAIRED DRIVING ABILITY [None]
  - PERSONALITY CHANGE [None]
  - PERSONALITY DISORDER [None]
